FAERS Safety Report 25852835 (Version 2)
Quarter: 2025Q3

REPORT INFORMATION
  Report Type: Spontaneous
  Country: CN (occurrence: CN)
  Receive Date: 20250926
  Receipt Date: 20250929
  Transmission Date: 20251021
  Serious: Yes (Other)
  Sender: PFIZER
  Company Number: CN-MLMSERVICE-20250915-PI644700-00202-1

PATIENT
  Age: 41 Year
  Sex: Female

DRUGS (10)
  1. LINEZOLID [Suspect]
     Active Substance: LINEZOLID
     Indication: Evidence based treatment
     Dosage: 600 MG, 2X/DAY (FREQ:12 H)
     Route: 041
     Dates: start: 202306, end: 20230701
  2. LINEZOLID [Suspect]
     Active Substance: LINEZOLID
     Indication: Antibiotic therapy
  3. LINEZOLID [Suspect]
     Active Substance: LINEZOLID
     Indication: Atypical mycobacterial infection
  4. LINEZOLID [Suspect]
     Active Substance: LINEZOLID
     Indication: Postoperative wound infection
  5. LINEZOLID [Suspect]
     Active Substance: LINEZOLID
     Indication: Postoperative wound infection
     Route: 048
     Dates: start: 202307, end: 202307
  6. LINEZOLID [Suspect]
     Active Substance: LINEZOLID
     Indication: Atypical mycobacterial infection
     Dosage: 300 MG, 2X/DAY
     Route: 048
     Dates: start: 202307
  7. AMIKACIN [Concomitant]
     Active Substance: AMIKACIN
     Indication: Atypical mycobacterial infection
     Dosage: 600 MG, 1X/DAY
     Dates: start: 20230629, end: 20230701
  8. AMIKACIN [Concomitant]
     Active Substance: AMIKACIN
     Indication: Postoperative wound infection
     Dosage: 400 MG, DAILY
  9. IMIPENEM [Concomitant]
     Active Substance: IMIPENEM
     Indication: Atypical mycobacterial infection
     Dosage: 1 G, 2X/DAY
     Dates: start: 20230629
  10. IMIPENEM [Concomitant]
     Active Substance: IMIPENEM
     Indication: Postoperative wound infection

REACTIONS (7)
  - Anaemia [Recovering/Resolving]
  - Thrombocytopenia [Recovered/Resolved]
  - Myelosuppression [Recovered/Resolved]
  - Haematotoxicity [Recovered/Resolved]
  - Antibiotic level above therapeutic [Recovered/Resolved]
  - Off label use [Unknown]
  - Drug effective for unapproved indication [Unknown]

NARRATIVE: CASE EVENT DATE: 20230601
